FAERS Safety Report 4947188-1 (Version None)
Quarter: 2006Q1

REPORT INFORMATION
  Report Type: 
  Country: None (occurrence: None)
  Receive Date: 20060313
  Receipt Date: 20060226
  Transmission Date: 20060701
  Serious: Yes (Other)
  Sender: FDA-Public Use
  Company Number: 2006028085

PATIENT
  Sex: Male
  Weight: 72.5755 kg

DRUGS (4)
  1. VIAGRA [Suspect]
     Indication: ERECTILE DYSFUNCTION
     Dosage: 100 MG AS NECESSARY, ORAL
     Route: 048
  2. VICOPROFEN [Concomitant]
  3. PRILOSEC [Concomitant]
  4. DITROPAN [Concomitant]

REACTIONS (3)
  - DRUG INEFFECTIVE [None]
  - HERNIA REPAIR [None]
  - PROSTATE EXAMINATION ABNORMAL [None]
